FAERS Safety Report 5612084-3 (Version None)
Quarter: 2008Q1

REPORT INFORMATION
  Report Type: 
  Country: None (occurrence: None)
  Receive Date: 20080204
  Receipt Date: 20080129
  Transmission Date: 20080703
  Serious: Yes (Death)
  Sender: FDA-Public Use
  Company Number: PHBS2008CH01592

PATIENT
  Age: 59 Year
  Sex: Male

DRUGS (2)
  1. MEPOLIZUMAB [Concomitant]
     Dosage: 750 MG EACH W.INTERVALS OF 2 WEEKS
  2. IMATINIB [Suspect]
     Indication: EOSINOPHILIC LEUKAEMIA
     Dosage: 400 MG/D
     Route: 065
     Dates: start: 20030101

REACTIONS (7)
  - CARDIAC FAILURE [None]
  - COUGH [None]
  - DEPRESSION [None]
  - DRUG RESISTANCE [None]
  - DYSPNOEA [None]
  - MALIGNANT NEOPLASM PROGRESSION [None]
  - RASH PRURITIC [None]
